FAERS Safety Report 7392449-2 (Version None)
Quarter: 2011Q2

REPORT INFORMATION
  Report Type: 
  Country: None (occurrence: None)
  Receive Date: 20110404
  Receipt Date: 20110322
  Transmission Date: 20111010
  Serious: Yes (Hospitalization)
  Sender: FDA-Public Use
  Company Number: FR-WATSON-2011-01150

PATIENT
  Sex: Female

DRUGS (1)
  1. MEPROBAMATE [Suspect]
     Indication: OVERDOSE
     Dosage: UNK
     Route: 048

REACTIONS (8)
  - CIRCULATORY COLLAPSE [None]
  - OVERDOSE [None]
  - TACHYCARDIA [None]
  - HYPERLACTACIDAEMIA [None]
  - METABOLIC ACIDOSIS [None]
  - COMA [None]
  - LOSS OF CONSCIOUSNESS [None]
  - HYPOTENSION [None]
